FAERS Safety Report 9086242 (Version 1)
Quarter: 2013Q1

REPORT INFORMATION
  Report Type: Spontaneous
  Country: US (occurrence: US)
  Receive Date: 20130130
  Receipt Date: 20130130
  Transmission Date: 20140127
  Serious: Yes (Other)
  Sender: FDA-Public Use
  Company Number: US-SANOFI-AVENTIS-2013SA006741

PATIENT
  Sex: Female

DRUGS (1)
  1. ALLEGRA-D [Suspect]
     Dates: start: 2003

REACTIONS (4)
  - Depression [Recovered/Resolved]
  - Premenstrual dysphoric disorder [Recovered/Resolved]
  - Bipolar disorder [Recovered/Resolved]
  - Mood swings [Recovered/Resolved]
